FAERS Safety Report 9339040 (Version 2)
Quarter: 2013Q4

REPORT INFORMATION
  Report Type: Spontaneous
  Country: US (occurrence: None)
  Receive Date: 20130530
  Receipt Date: 20131003
  Transmission Date: 20140711
  Serious: Yes (Hospitalization)
  Sender: FDA-Public Use
  Company Number: 2013036201

PATIENT
  Age: 59 Year
  Sex: Male
  Weight: 86.18 kg

DRUGS (20)
  1. PRIVIGEN (IMMUNE GLOBULIN INTRAVENOUS (HUMAN) 10% LIQUID) [Suspect]
     Indication: HYPOGLOBULINAEMIA
     Dosage: 35 G 1X/4 WEEKS
     Route: 042
     Dates: start: 20130321, end: 20130321
  2. PRIVIGEN (IMMUNE GLOBULIN INTRAVENOUS (HUMAN) 10% LIQUID) [Suspect]
     Indication: IMMUNODEFICIENCY COMMON VARIABLE
     Dosage: 35 G 1X/4 WEEKS
     Route: 042
     Dates: start: 20130321, end: 20130321
  3. METOPROLOL SUCCINATE (METOPROLOL SUCCINATE) [Concomitant]
  4. SINGULAIR [Concomitant]
  5. PREDNISONE (PREDNISONE) [Concomitant]
  6. ALLEGRA (FEXOFENADINE) [Concomitant]
  7. VALTREX (VALACICLOVIR HYDROCHLORIDE) [Concomitant]
  8. VITAMIN B12 (CYANOCOBALAMIN) [Concomitant]
  9. ACETAMINOPHEN (PARACETAMOL) [Concomitant]
  10. DIPHENHYDRAMINE (DIPHENHYDRAMINE) [Concomitant]
  11. DIPHENHYDRAMINE HYDROCHLORIDE (DIPHENHYDRAMINE HYDROCHLORIDE) [Concomitant]
  12. HEPARIN (HEPARIN) [Concomitant]
  13. LIDOCAINE (LIDOCAINE) [Concomitant]
  14. SODIUM CHLORIDE [Concomitant]
  15. EPI-PEN (EPINEPHRINE HYDROCHLORIDE) [Concomitant]
  16. IBUPROFEN [Concomitant]
  17. STERILE WATER (WATER) [Concomitant]
  18. MUCINEX [Concomitant]
  19. PROTONIX DR (PANTROPRAZOLE) [Concomitant]
  20. CYANOCOBALAMIN (CYANOCOBALAMIN) (CYANOCOBALAMIN) [Concomitant]

REACTIONS (2)
  - Cardiac flutter [None]
  - Sinusitis [None]
